FAERS Safety Report 8373764-2 (Version None)
Quarter: 2012Q2

REPORT INFORMATION
  Report Type: 
  Country: None (occurrence: None)
  Receive Date: 20120517
  Receipt Date: 20120504
  Transmission Date: 20120825
  Serious: Yes (Other)
  Sender: FDA-Public Use
  Company Number: FK201201342

PATIENT
  Age: 41 Year
  Sex: Female

DRUGS (1)
  1. ADENOSINE [Suspect]
     Indication: SUPRAVENTRICULAR TACHYCARDIA
     Dosage: 6 MG, BOLUS, INTRAVENOUS BOLUS
     Route: 040

REACTIONS (4)
  - ELECTROCARDIOGRAM ST SEGMENT ELEVATION [None]
  - ELECTROCARDIOGRAM ST SEGMENT DEPRESSION [None]
  - ARTERIOSPASM CORONARY [None]
  - CHEST DISCOMFORT [None]
